FAERS Safety Report 24768774 (Version 1)
Quarter: 2024Q4

REPORT INFORMATION
  Report Type: Spontaneous
  Country: IL (occurrence: IL)
  Receive Date: 20241224
  Receipt Date: 20241224
  Transmission Date: 20250115
  Serious: Yes (Other)
  Sender: BOEHRINGER INGELHEIM
  Company Number: IL-BoehringerIngelheim-2024-BI-069405

PATIENT
  Age: 67 Year
  Sex: Female

DRUGS (3)
  1. EMPAGLIFLOZIN\METFORMIN HYDROCHLORIDE [Suspect]
     Active Substance: EMPAGLIFLOZIN\METFORMIN HYDROCHLORIDE
     Indication: Diabetes mellitus
     Dosage: EMPAGLIFLOZIN 12.5 MG/METFORMIN 1000 MG
  2. atorvastatin 40 mg/ezetimib 10 mg [Concomitant]
     Indication: Product used for unknown indication
     Dosage: ATORVASTATIN 40 MG/EZETIMIB 10 MG
  3. BISOPROLOL [Concomitant]
     Active Substance: BISOPROLOL
     Indication: Product used for unknown indication

REACTIONS (1)
  - Emphysematous cystitis [Recovered/Resolved]
